FAERS Safety Report 14853515 (Version 1)
Quarter: 2018Q2

REPORT INFORMATION
  Report Type: Spontaneous
  Country: FR (occurrence: FR)
  Receive Date: 20180507
  Receipt Date: 20180507
  Transmission Date: 20180711
  Serious: Yes (Hospitalization)
  Sender: FDA-Public Use
  Company Number: FR-PFIZER INC-2018184598

PATIENT
  Age: 89 Year
  Sex: Female

DRUGS (2)
  1. DIGOXINE NATIVELLE [Suspect]
     Active Substance: DIGOXIN
     Indication: ARRHYTHMIA
     Dosage: 0.25 MG, DAILY
     Route: 048
     Dates: end: 20180325
  2. CORDARONE [Suspect]
     Active Substance: AMIODARONE HYDROCHLORIDE
     Indication: ARRHYTHMIA
     Dosage: 200 MG, DAILY
     Route: 048
     Dates: end: 20180325

REACTIONS (8)
  - Confusional state [Recovering/Resolving]
  - Atrial fibrillation [Recovering/Resolving]
  - Bradyarrhythmia [Recovering/Resolving]
  - Agitation [Recovering/Resolving]
  - Abnormal behaviour [Recovering/Resolving]
  - Visual acuity reduced [Recovering/Resolving]
  - Cardioactive drug level increased [Recovered/Resolved]
  - Tachyarrhythmia [Recovering/Resolving]

NARRATIVE: CASE EVENT DATE: 20180323
